FAERS Safety Report 16647173 (Version 2)
Quarter: 2019Q3

REPORT INFORMATION
  Report Type: Spontaneous
  Country: JP (occurrence: JP)
  Receive Date: 20190730
  Receipt Date: 20190815
  Transmission Date: 20191004
  Serious: Yes (Hospitalization, Other)
  Sender: FDA-Public Use
  Company Number: JP-ASTRAZENECA-2019SF08008

PATIENT
  Age: 73 Year
  Sex: Male

DRUGS (1)
  1. IMFINZI [Suspect]
     Active Substance: DURVALUMAB
     Indication: NON-SMALL CELL LUNG CANCER
     Route: 041

REACTIONS (4)
  - Hypoaesthesia [Unknown]
  - Neuropathy peripheral [Unknown]
  - Metastases to bone marrow [Unknown]
  - Malignant neoplasm progression [Unknown]
